FAERS Safety Report 5958449-1 (Version None)
Quarter: 2008Q4

REPORT INFORMATION
  Report Type: 
  Country: None (occurrence: None)
  Receive Date: 20081119
  Receipt Date: 20081113
  Transmission Date: 20090506
  Serious: Yes (Death, Life-Threatening, Hospitalization, Disabling, Other)
  Sender: FDA-Public Use
  Company Number: US-CELGENEUS-163-21880-08101338

PATIENT
  Sex: Male

DRUGS (7)
  1. REVLIMID [Suspect]
     Route: 048
     Dates: start: 20080821, end: 20081026
  2. REVLIMID [Suspect]
     Indication: PANCYTOPENIA
  3. REVLIMID [Suspect]
     Indication: CYTOGENETIC ABNORMALITY
  4. BLOOD TRANSFUSION [Concomitant]
     Dosage: 2 UNITS
     Route: 051
     Dates: start: 20081014, end: 20081014
  5. BLOOD TRANSFUSION [Concomitant]
     Dosage: 2 UNITS
     Route: 051
     Dates: start: 20081017, end: 20081017
  6. ANTIBIOTICS [Concomitant]
     Route: 065
  7. PROCRIT [Concomitant]
     Route: 065
     Dates: start: 20080731, end: 20080928

REACTIONS (11)
  - ANXIETY [None]
  - CEREBRAL HAEMORRHAGE [None]
  - CHILLS [None]
  - CONFUSIONAL STATE [None]
  - FALL [None]
  - HAEMATOCHEZIA [None]
  - NEUTROPHIL COUNT ABNORMAL [None]
  - PLATELET COUNT DECREASED [None]
  - PYREXIA [None]
  - SKIN INJURY [None]
  - SKIN NODULE [None]
